FAERS Safety Report 7948228-8 (Version None)
Quarter: 2011Q4

REPORT INFORMATION
  Report Type: 
  Country: None (occurrence: None)
  Receive Date: 20111130
  Receipt Date: 20111115
  Transmission Date: 20120403
  Serious: Yes (Other)
  Sender: FDA-Public Use
  Company Number: GB-MYLANLABS-2011S1018868

PATIENT
  Age: 66 Year
  Sex: Female
  Weight: 59 kg

DRUGS (4)
  1. NIZATIDINE [Suspect]
     Indication: DYSPEPSIA
     Route: 048
     Dates: start: 20110817, end: 20110901
  2. AMLODIPINE [Concomitant]
     Indication: HYPERTENSION
     Route: 048
     Dates: start: 20060206
  3. NIZATIDINE [Suspect]
     Route: 048
     Dates: start: 20110908
  4. PARACETAMOL [Concomitant]
     Indication: PRODUCT USED FOR UNKNOWN INDICATION
     Route: 048

REACTIONS (4)
  - FATIGUE [None]
  - ARRHYTHMIA [None]
  - PALPITATIONS [None]
  - DYSPNOEA [None]
